FAERS Safety Report 16465865 (Version 3)
Quarter: 2019Q3

REPORT INFORMATION
  Report Type: Report from Study
  Country: US (occurrence: US)
  Receive Date: 20190621
  Receipt Date: 20190807
  Transmission Date: 20191004
  Serious: Yes (Hospitalization)
  Sender: FDA-Public Use
  Company Number: US-ACTELION-A-US2019-189161

PATIENT
  Age: 51 Year
  Sex: Female
  Weight: 59.86 kg

DRUGS (14)
  1. UPTRAVI [Suspect]
     Active Substance: SELEXIPAG
     Dosage: UNK
     Route: 048
     Dates: start: 20170529
  2. PREDNISONE. [Concomitant]
     Active Substance: PREDNISONE
     Dosage: UNK
     Dates: start: 20090212
  3. UPTRAVI [Suspect]
     Active Substance: SELEXIPAG
     Dosage: 1600 MCG, BID
     Route: 048
     Dates: start: 20190429
  4. XELODA [Suspect]
     Active Substance: CAPECITABINE
     Indication: CHEMOTHERAPY
     Dosage: UNK
     Route: 048
     Dates: start: 20190606
  5. TADALAFIL. [Concomitant]
     Active Substance: TADALAFIL
     Dosage: UNK
     Dates: start: 201705
  6. APIXABAN [Concomitant]
     Active Substance: APIXABAN
     Dosage: UNK
     Dates: start: 20190329
  7. PROPAFENONE. [Concomitant]
     Active Substance: PROPAFENONE
     Dosage: UNK
     Dates: start: 20190329
  8. AZITHROMYCIN ANHYDROUS. [Concomitant]
     Active Substance: AZITHROMYCIN ANHYDROUS
     Dosage: UNK
     Dates: start: 20180314
  9. ELIQUIS [Concomitant]
     Active Substance: APIXABAN
  10. UPTRAVI [Suspect]
     Active Substance: SELEXIPAG
     Indication: PULMONARY HYPERTENSION
     Dosage: 1600 MCG, BID
     Route: 048
     Dates: start: 20171121
  11. FUROSEMIDE. [Concomitant]
     Active Substance: FUROSEMIDE
     Dosage: UNK
     Dates: start: 20110429
  12. TACROLIMUS. [Concomitant]
     Active Substance: TACROLIMUS
     Dosage: UNK
     Dates: start: 20120525
  13. LETAIRIS [Concomitant]
     Active Substance: AMBRISENTAN
     Dosage: UNK
     Dates: start: 201207
  14. VALGANCICLOVIR. [Concomitant]
     Active Substance: VALGANCICLOVIR
     Dosage: UNK
     Dates: start: 20110429

REACTIONS (23)
  - Eating disorder [Recovered/Resolved]
  - Mass excision [Recovered/Resolved]
  - Bronchial obstruction [Not Recovered/Not Resolved]
  - Condition aggravated [Recovered/Resolved with Sequelae]
  - Post transplant lymphoproliferative disorder [Not Recovered/Not Resolved]
  - Pyrexia [Recovered/Resolved with Sequelae]
  - Jaw operation [Recovered/Resolved]
  - Acute respiratory failure [Recovered/Resolved with Sequelae]
  - Lethargy [Recovered/Resolved]
  - Pulmonary oedema [Unknown]
  - Squamous cell carcinoma [Recovered/Resolved]
  - Oxygen consumption increased [Recovered/Resolved with Sequelae]
  - Pleural effusion [Recovered/Resolved with Sequelae]
  - Mass [Recovered/Resolved]
  - Dyspnoea exertional [Unknown]
  - Posterior reversible encephalopathy syndrome [Recovered/Resolved]
  - Adverse drug reaction [Unknown]
  - Pulmonary mass [Not Recovered/Not Resolved]
  - Infection [Not Recovered/Not Resolved]
  - Mental status changes [Recovered/Resolved]
  - Pain [Recovered/Resolved]
  - Neck dissection [Recovered/Resolved]
  - Aspiration pleural cavity [Recovered/Resolved with Sequelae]

NARRATIVE: CASE EVENT DATE: 201901
